FAERS Safety Report 8604980-X (Version None)
Quarter: 2012Q3

REPORT INFORMATION
  Report Type: 
  Country: None (occurrence: None)
  Receive Date: 20120808
  Receipt Date: 20120808
  Transmission Date: 20120928
  Serious: Yes (Other)
  Sender: FDA-Public Use
  Company Number: None

PATIENT
  Age: 61 Year
  Sex: Male
  Weight: 108.2 kg

DRUGS (1)
  1. LEVOFLOXACIN [Suspect]
     Indication: PNEUMONIA
     Dosage: 500MG 1 DAILY ORAL 047
     Route: 048
     Dates: start: 20120706, end: 20120715

REACTIONS (26)
  - WEIGHT BEARING DIFFICULTY [None]
  - MUSCULAR WEAKNESS [None]
  - TREMOR [None]
  - CHILLS [None]
  - OROPHARYNGEAL PAIN [None]
  - MOVEMENT DISORDER [None]
  - INSOMNIA [None]
  - DIZZINESS [None]
  - HEADACHE [None]
  - RESTLESSNESS [None]
  - FEELING ABNORMAL [None]
  - DEPRESSION [None]
  - HUNGER [None]
  - HYPOAESTHESIA [None]
  - CHEST PAIN [None]
  - AGITATION [None]
  - THIRST [None]
  - FATIGUE [None]
  - JOINT SWELLING [None]
  - DYSURIA [None]
  - NERVOUSNESS [None]
  - PAIN [None]
  - DYSPNOEA [None]
  - PARAESTHESIA [None]
  - BLISTER [None]
  - MEMORY IMPAIRMENT [None]
